FAERS Safety Report 7644542-4 (Version None)
Quarter: 2011Q3

REPORT INFORMATION
  Report Type: 
  Country: None (occurrence: None)
  Receive Date: 20110725
  Receipt Date: 20110719
  Transmission Date: 20111222
  Serious: Yes (Death, Life-Threatening, Hospitalization, Disabling)
  Sender: FDA-Public Use
  Company Number: 2011SP033781

PATIENT

DRUGS (1)
  1. SAPHRIS [Suspect]
     Indication: DEPRESSION SUICIDAL
     Dosage: 10 MG;BID;SL
     Route: 060

REACTIONS (2)
  - OFF LABEL USE [None]
  - COMPLETED SUICIDE [None]
